FAERS Safety Report 6418663-8 (Version None)
Quarter: 2009Q4

REPORT INFORMATION
  Report Type: 
  Country: None (occurrence: None)
  Receive Date: 20091028
  Receipt Date: 20091020
  Transmission Date: 20100525
  Serious: Yes (Other)
  Sender: FDA-Public Use
  Company Number: US-JNJCH-2009028174

PATIENT
  Age: 8 Year
  Sex: Male
  Weight: 45.4 kg

DRUGS (3)
  1. CHILDREN'S ZYRTEC ALLERGY [Suspect]
     Indication: SINUS DISORDER
     Route: 048
     Dates: start: 20091017, end: 20091017
  2. ADDERALL 30 [Concomitant]
     Indication: ATTENTION DEFICIT/HYPERACTIVITY DISORDER
     Dosage: TEXT:VARYING DOSES - UNSPECIFIED
     Route: 065
  3. RISPERDAL [Concomitant]
     Indication: ANXIETY
     Dosage: TEXT:VARYING DOSES - UNSPECIFIED
     Route: 065

REACTIONS (1)
  - AGGRESSION [None]
